FAERS Safety Report 5618400-0 (Version None)
Quarter: 2008Q1

REPORT INFORMATION
  Report Type: 
  Country: None (occurrence: None)
  Receive Date: 20080114
  Receipt Date: 20071130
  Transmission Date: 20080703
  Serious: Yes (Hospitalization)
  Sender: FDA-Public Use
  Company Number: A03200702548

PATIENT
  Age: 62 Year
  Sex: Male
  Weight: 79.3795 kg

DRUGS (3)
  1. PLAVIX [Suspect]
     Indication: ISCHAEMIA
     Dosage: 75 MG QD - ORAL
     Route: 048
     Dates: start: 20070301
  2. PLAVIX [Suspect]
     Indication: STENT PLACEMENT
     Dosage: 75 MG QD - ORAL
     Route: 048
     Dates: start: 20070301
  3. ACETYLSALICYLIC ACID SRT [Concomitant]

REACTIONS (1)
  - HAEMATURIA [None]
